FAERS Safety Report 8784841 (Version 1)
Quarter: 2012Q4

REPORT INFORMATION
  Report Type: Spontaneous
  Country: US (occurrence: None)
  Receive Date: 20120907
  Receipt Date: 20120907
  Transmission Date: 20130627
  Serious: Yes (Death)
  Sender: FDA-Public Use
  Company Number: None

PATIENT
  Age: 92 Year
  Sex: Female
  Weight: 90.72 kg

DRUGS (1)
  1. PRADAXA [Suspect]
     Route: 048
     Dates: start: 20120323, end: 20120402

REACTIONS (10)
  - Myocardial infarction [None]
  - Haematochezia [None]
  - Dyspepsia [None]
  - Gastrooesophageal reflux disease [None]
  - Cardiac failure congestive [None]
  - Dyspnoea [None]
  - Fluid retention [None]
  - Thrombosis [None]
  - Renal impairment [None]
  - Aortic thrombosis [None]
